FAERS Safety Report 12600069 (Version 1)
Quarter: 2016Q3

REPORT INFORMATION
  Report Type: Report from Study
  Country: GR (occurrence: GR)
  Receive Date: 20160727
  Receipt Date: 20160727
  Transmission Date: 20161109
  Serious: Yes (Death)
  Sender: FDA-Public Use
  Company Number: PHHY2016GR102975

PATIENT
  Age: 35 Year
  Sex: Female

DRUGS (2)
  1. PAZOPANIB [Suspect]
     Active Substance: PAZOPANIB
     Dosage: 400 MG, UNK
     Route: 065
     Dates: end: 201405
  2. PAZOPANIB [Suspect]
     Active Substance: PAZOPANIB
     Indication: ANGIOSARCOMA METASTATIC
     Dosage: 800 MG, UNK
     Route: 065

REACTIONS (6)
  - General physical health deterioration [Fatal]
  - Malignant neoplasm progression [Fatal]
  - Diarrhoea [Fatal]
  - Bone lesion [Fatal]
  - Metastases to chest wall [Fatal]
  - Abdominal pain [Fatal]
